FAERS Safety Report 4430096-2 (Version None)
Quarter: 2004Q3

REPORT INFORMATION
  Report Type: 
  Country: None (occurrence: None)
  Receive Date: 20040817
  Receipt Date: 20040805
  Transmission Date: 20050211
  Serious: Yes (Death)
  Sender: FDA-Public Use
  Company Number: S04-USA-04852-01

PATIENT
  Age: 60 Year
  Sex: Female

DRUGS (5)
  1. LEXAPRO [Suspect]
     Indication: DEPRESSION
     Dosage: 10 MG QD PO
     Route: 048
     Dates: start: 20020101, end: 20040330
  2. METHADONE HCL [Suspect]
     Indication: PAIN
     Dates: start: 20010101, end: 20040301
  3. ATIVAN [Suspect]
     Indication: ANXIETY
     Dates: start: 20010101, end: 20040301
  4. AMITRIPTYLINE HCL [Suspect]
     Indication: INSOMNIA
     Dates: start: 20010101, end: 20040301
  5. TRAMADOL HCL [Suspect]
     Indication: PAIN
     Dates: start: 20040301, end: 20040330

REACTIONS (6)
  - ANTIDEPRESSANT DRUG LEVEL ABOVE THERAPEUTIC [None]
  - FALL [None]
  - FOREARM FRACTURE [None]
  - MYOCARDIAL INFARCTION [None]
  - POST PROCEDURAL PAIN [None]
  - RESPIRATORY FAILURE [None]
